FAERS Safety Report 25069434 (Version 1)
Quarter: 2025Q1

REPORT INFORMATION
  Report Type: Spontaneous
  Country: US (occurrence: US)
  Receive Date: 20250312
  Receipt Date: 20250312
  Transmission Date: 20250409
  Serious: Yes (Other)
  Sender: JEROME STEVENS
  Company Number: US-Jerome Stevens Pharmaceuticals, Inc.-2172723

PATIENT
  Age: 60 Year
  Sex: Female

DRUGS (3)
  1. DIGOXIN [Suspect]
     Active Substance: DIGOXIN
     Indication: Atrial fibrillation
  2. PROPRANOLOL [Suspect]
     Active Substance: PROPRANOLOL HYDROCHLORIDE
  3. APIXABAN [Suspect]
     Active Substance: APIXABAN

REACTIONS (1)
  - BRASH syndrome [Recovering/Resolving]
